FAERS Safety Report 8284493-8 (Version None)
Quarter: 2012Q2

REPORT INFORMATION
  Report Type: 
  Country: None (occurrence: None)
  Receive Date: 20120413
  Receipt Date: 20111108
  Transmission Date: 20120825
  Serious: No
  Sender: FDA-Public Use
  Company Number: US-ASTRAZENECA-2011SE63255

PATIENT
  Age: 61 Year
  Sex: Female

DRUGS (2)
  1. NEXIUM [Suspect]
     Route: 048
  2. OTHER [Suspect]
     Route: 065

REACTIONS (4)
  - DRUG DOSE OMISSION [None]
  - SYSTEMIC LUPUS ERYTHEMATOSUS [None]
  - SJOGREN'S SYNDROME [None]
  - ABDOMINAL DISCOMFORT [None]
